FAERS Safety Report 9935624 (Version 1)
Quarter: 2014Q1

REPORT INFORMATION
  Report Type: Spontaneous
  Country: DE (occurrence: DE)
  Receive Date: 20140228
  Receipt Date: 20140228
  Transmission Date: 20141002
  Serious: Yes (Death, Congenital Anomaly, Other)
  Sender: FDA-Public Use
  Company Number: PHHY2014DE021448

PATIENT
  Sex: Female

DRUGS (1)
  1. CANDESARTAN CILEXETIL [Suspect]
     Dosage: (MATERNAL DOSE: 16 MG/DAY)
     Route: 064

REACTIONS (13)
  - Death [Fatal]
  - Joint contracture [Unknown]
  - Microcephaly [Unknown]
  - Pulmonary hypoplasia [Unknown]
  - Hypotonia neonatal [Unknown]
  - Respiratory acidosis [Unknown]
  - Congenital eyelid malformation [Unknown]
  - Skin malformation [Unknown]
  - Coagulation disorder neonatal [Unknown]
  - Premature baby [Unknown]
  - Renal failure [Unknown]
  - Anuria [Unknown]
  - Foetal exposure during pregnancy [Unknown]
